FAERS Safety Report 6822640-2 (Version None)
Quarter: 2010Q3

REPORT INFORMATION
  Report Type: 
  Country: None (occurrence: None)
  Receive Date: 20100706
  Receipt Date: 20100706
  Transmission Date: 20110219
  Serious: Yes (Hospitalization)
  Sender: FDA-Public Use
  Company Number: None

PATIENT
  Sex: Male
  Weight: 129.5 kg

DRUGS (14)
  1. ABILIFY [Suspect]
     Dosage: 5 MG QAM PO
     Route: 048
     Dates: start: 20080628, end: 20100630
  2. ASACOL [Concomitant]
  3. AZASAN [Concomitant]
  4. SOTALOL HCL [Concomitant]
  5. PREDNISONE [Concomitant]
  6. PANTOPRAZOLE [Concomitant]
  7. SIMVASTATIN [Concomitant]
  8. FUROSEMIDE [Concomitant]
  9. POTASSIUM CHLORIDE [Concomitant]
  10. LISINOPRIL [Concomitant]
  11. FLOMAX [Concomitant]
  12. CYMBALTA [Concomitant]
  13. ASPIRIN [Concomitant]
  14. COUMADIN [Concomitant]

REACTIONS (19)
  - ANXIETY [None]
  - ASTHENIA [None]
  - BACK PAIN [None]
  - CONTUSION [None]
  - DEPRESSION [None]
  - DYSPNOEA [None]
  - FATIGUE [None]
  - HAEMORRHAGE [None]
  - HEARING IMPAIRED [None]
  - HYPOAESTHESIA [None]
  - JOINT SWELLING [None]
  - NOCTURIA [None]
  - OEDEMA PERIPHERAL [None]
  - PERIPHERAL COLDNESS [None]
  - PLEURITIC PAIN [None]
  - POLLAKIURIA [None]
  - SNORING [None]
  - SYNCOPE [None]
  - WEIGHT INCREASED [None]
